FAERS Safety Report 10305521 (Version 1)
Quarter: 2014Q3

REPORT INFORMATION
  Report Type: Spontaneous
  Country: JP (occurrence: JP)
  Receive Date: 20140715
  Receipt Date: 20140715
  Transmission Date: 20150326
  Serious: Yes (Hospitalization)
  Sender: FDA-Public Use
  Company Number: PHHY2014JP084189

PATIENT
  Sex: Female

DRUGS (4)
  1. HEPARIN [Suspect]
     Active Substance: HEPARIN SODIUM
     Dosage: 2 U/ML, UNK
  2. INDOMETHACIN. [Concomitant]
     Active Substance: INDOMETHACIN
     Indication: PATENT DUCTUS ARTERIOSUS
     Dosage: 0.1 MG/KG, UNK
  3. HEPARIN [Suspect]
     Active Substance: HEPARIN SODIUM
     Dosage: 55 U PER KG PER DAY
  4. HEPARIN [Suspect]
     Active Substance: HEPARIN SODIUM
     Indication: CENTRAL VENOUS CATHETERISATION
     Dosage: 1 U/ML, UNK

REACTIONS (1)
  - Hyperkalaemia [Recovered/Resolved]
